FAERS Safety Report 17361446 (Version 1)
Quarter: 2020Q1

REPORT INFORMATION
  Report Type: Spontaneous
  Country: US (occurrence: US)
  Receive Date: 20200203
  Receipt Date: 20200203
  Transmission Date: 20200409
  Serious: No
  Sender: FDA-Public Use
  Company Number: US-PFIZER INC-2020041404

PATIENT
  Age: 80 Year
  Sex: Female
  Weight: 78.6 kg

DRUGS (2)
  1. MAGNESIUM SULFATE. [Suspect]
     Active Substance: MAGNESIUM SULFATE
     Indication: ELECTROLYTE SUBSTITUTION THERAPY
     Dosage: UNK (4 G BAG FOR IV, 100 ML INFUSED AT 25 ML/HR/ 4 G/100 ML BAG)
     Route: 042
     Dates: start: 20200125, end: 20200125
  2. MAGNESIUM SULFATE. [Suspect]
     Active Substance: MAGNESIUM SULFATE
     Dosage: UNK (2 G BAG FOR IV, INFUSED AT 13ML/HR)
     Route: 042

REACTIONS (4)
  - Chills [Recovered/Resolved]
  - Flushing [Recovered/Resolved]
  - Hyperhidrosis [Recovered/Resolved]
  - Nausea [Recovered/Resolved]

NARRATIVE: CASE EVENT DATE: 20200125
